FAERS Safety Report 21052621 (Version 1)
Quarter: 2022Q3

REPORT INFORMATION
  Report Type: Spontaneous
  Country: US (occurrence: None)
  Receive Date: 20220706
  Receipt Date: 20220706
  Transmission Date: 20221027
  Serious: No
  Sender: FDA-Public Use
  Company Number: None

PATIENT
  Sex: Male

DRUGS (1)
  1. STELARA [Suspect]
     Active Substance: USTEKINUMAB
     Indication: Inflammatory bowel disease
     Dosage: OTHER QUANTITY : 90MG/1ML;?OTHER FREQUENCY : Q4WKS;?
     Dates: start: 20211228

REACTIONS (3)
  - Condition aggravated [None]
  - Small intestinal obstruction [None]
  - Abscess intestinal [None]
